FAERS Safety Report 4446485-6 (Version None)
Quarter: 2004Q3

REPORT INFORMATION
  Report Type: 
  Country: None (occurrence: None)
  Receive Date: 20040907
  Receipt Date: 20040820
  Transmission Date: 20050211
  Serious: Yes (Hospitalization)
  Sender: FDA-Public Use
  Company Number: ATO-04-0773

PATIENT
  Age: 72 Year
  Sex: Female
  Weight: 66.2 kg

DRUGS (6)
  1. TRISENOX [Suspect]
     Dosage: 9.9 MG (0.15 MG/M2, 2X/WK FOR WKS WITH 2 WK BREAK), IVI
     Route: 042
     Dates: start: 20040803, end: 20040813
  2. CARDIZEM [Concomitant]
  3. WARFARIN SODIUM [Concomitant]
  4. NIFEREX [Concomitant]
  5. MAGNESIUM OXIDE [Concomitant]
  6. TYLENOL [Concomitant]

REACTIONS (2)
  - CARDIAC FAILURE CONGESTIVE [None]
  - CONDUCTION DISORDER [None]
